FAERS Safety Report 20707023 (Version 1)
Quarter: 2022Q2

REPORT INFORMATION
  Report Type: Spontaneous
  Country: US (occurrence: US)
  Receive Date: 20220413
  Receipt Date: 20220413
  Transmission Date: 20220721
  Serious: No
  Sender: FDA-Public Use
  Company Number: US-PFIZER INC-202100998428

PATIENT
  Age: 60 Year
  Sex: Male

DRUGS (1)
  1. CHANTIX [Suspect]
     Active Substance: VARENICLINE TARTRATE
     Dosage: 1 MG, 2X/DAY (HE WAS ON THE STARTER PACK AND THEN MOVED TO THE 1 MG TWICE A DAY)
     Dates: start: 20210310, end: 20210505

REACTIONS (4)
  - Recalled product administered [Unknown]
  - Nausea [Unknown]
  - Insomnia [Unknown]
  - Abnormal dreams [Unknown]
